FAERS Safety Report 4710866-3 (Version None)
Quarter: 2005Q3

REPORT INFORMATION
  Report Type: 
  Country: None (occurrence: None)
  Receive Date: 20050711
  Receipt Date: 20050411
  Transmission Date: 20060218
  Serious: Yes (Hospitalization)
  Sender: FDA-Public Use
  Company Number: JP-GLAXOSMITHKLINE-B0377845A

PATIENT
  Age: 45 Year
  Sex: Female
  Weight: 42 kg

DRUGS (11)
  1. PAXIL [Suspect]
     Indication: DEPRESSION
     Route: 048
     Dates: start: 20041201
  2. LENDORMIN [Concomitant]
     Indication: INSOMNIA
     Dosage: 1U PER DAY
     Route: 048
  3. ALESION [Concomitant]
     Indication: RHINITIS ALLERGIC
     Dosage: 1U PER DAY
     Route: 048
  4. LEXOTAN [Concomitant]
     Indication: ANXIETY
     Dosage: 4MG PER DAY
     Route: 048
     Dates: start: 20050201
  5. ACECOL [Concomitant]
     Indication: HYPERTENSION
     Dosage: 1U PER DAY
     Route: 048
     Dates: start: 20000101
  6. COMELIAN [Concomitant]
     Indication: GLOMERULONEPHRITIS CHRONIC
     Dosage: 300MG PER DAY
     Route: 048
     Dates: start: 20000101
  7. DIOVAN [Concomitant]
     Indication: HYPERTENSION
     Dosage: 40MG PER DAY
     Route: 048
     Dates: start: 20020119
  8. MYSLEE [Concomitant]
     Route: 048
  9. VITANEURIN [Concomitant]
     Indication: MALAISE
     Dosage: 2U PER DAY
     Route: 048
     Dates: start: 20020430
  10. DEPAS [Concomitant]
     Indication: ANXIETY
     Dosage: 1.5MG PER DAY
     Route: 048
     Dates: start: 20041201
  11. DEPROMEL [Concomitant]
     Indication: ANXIETY
     Dosage: 50MG PER DAY
     Route: 048
     Dates: start: 20050201, end: 20050207

REACTIONS (4)
  - CONVERSION DISORDER [None]
  - DELIRIUM [None]
  - DEPRESSED LEVEL OF CONSCIOUSNESS [None]
  - WRONG DRUG ADMINISTERED [None]
